FAERS Safety Report 14085571 (Version 1)
Quarter: 2017Q4

REPORT INFORMATION
  Report Type: Spontaneous
  Country: TR (occurrence: TR)
  Receive Date: 20171013
  Receipt Date: 20171013
  Transmission Date: 20180321
  Serious: Yes (Life-Threatening, Hospitalization)
  Sender: FDA-Public Use
  Company Number: TR-009507513-1710TUR003682

PATIENT
  Age: 33 Year
  Sex: Female
  Weight: 56 kg

DRUGS (5)
  1. NEOSTIGMIN [Concomitant]
     Active Substance: NEOSTIGMINE
     Dosage: 1 DF, ONCE
     Route: 042
     Dates: start: 20170914, end: 20170914
  2. ESMERON [Suspect]
     Active Substance: ROCURONIUM BROMIDE
     Dosage: 1 DF, ONCE
     Route: 042
     Dates: start: 20170914, end: 20170914
  3. SYNPITAN [Suspect]
     Active Substance: OXYTOCIN
     Dosage: 2 DF, ONCE
     Dates: start: 20170914, end: 20170914
  4. METPAMID [Concomitant]
     Active Substance: METOCLOPRAMIDE
     Dosage: 1 DF, ONCE
     Route: 042
     Dates: start: 20170914, end: 20170914
  5. PENTAL (THIOPENTAL SODIUM) [Suspect]
     Active Substance: THIOPENTAL SODIUM
     Dosage: 1 DF, ONCE
     Route: 042
     Dates: start: 20170914, end: 20170914

REACTIONS (1)
  - Pulmonary oedema [Recovering/Resolving]

NARRATIVE: CASE EVENT DATE: 20170914
